FAERS Safety Report 17824284 (Version 1)
Quarter: 2020Q2

REPORT INFORMATION
  Report Type: Spontaneous
  Country: US (occurrence: US)
  Receive Date: 20200526
  Receipt Date: 20200526
  Transmission Date: 20200714
  Serious: Yes (Hospitalization)
  Sender: FDA-Public Use
  Company Number: US-PFIZER INC-2020205473

PATIENT
  Age: 1 Day
  Sex: Female
  Weight: 2.41 kg

DRUGS (1)
  1. FENTANYL CITRATE. [Suspect]
     Active Substance: FENTANYL CITRATE
     Indication: ENDOTRACHEAL INTUBATION
     Dosage: 2.5 UG (2.5MCG SLOW IV PUSH; ONCE)
     Route: 040
     Dates: start: 20200520, end: 20200520

REACTIONS (3)
  - Off label use [Recovered/Resolved]
  - Product use in unapproved indication [Recovered/Resolved]
  - Muscle rigidity [Recovered/Resolved]

NARRATIVE: CASE EVENT DATE: 20200520
